FAERS Safety Report 7504601-3 (Version None)
Quarter: 2011Q2

REPORT INFORMATION
  Report Type: 
  Country: None (occurrence: None)
  Receive Date: 20110525
  Receipt Date: 20110520
  Transmission Date: 20111010
  Serious: Yes (Death, Other)
  Sender: FDA-Public Use
  Company Number: BO-CELGENEUS-017-50794-11052967

PATIENT
  Sex: Male
  Weight: 76 kg

DRUGS (3)
  1. FLUCONAZOLE [Concomitant]
     Dosage: 150 MILLIGRAM
     Route: 065
  2. VIDAZA [Suspect]
     Dosage: 100 MILLIGRAM
     Route: 062
     Dates: start: 20110514, end: 20110518
  3. LEVOFLOXACIN [Concomitant]
     Dosage: 500 MILLIGRAM
     Route: 065

REACTIONS (3)
  - THROMBOCYTOPENIA [None]
  - CEREBROVASCULAR ACCIDENT [None]
  - MYOCARDIAL INFARCTION [None]
